FAERS Safety Report 9049632 (Version 2)
Quarter: 2013Q1

REPORT INFORMATION
  Report Type: Spontaneous
  Country: IT (occurrence: IT)
  Receive Date: 20130205
  Receipt Date: 20130318
  Transmission Date: 20140127
  Serious: Yes (Hospitalization)
  Sender: FDA-Public Use
  Company Number: IT-PFIZER INC-2013041523

PATIENT
  Age: 40 Year
  Sex: Female

DRUGS (4)
  1. ARACYTIN [Suspect]
     Indication: ACUTE MYELOID LEUKAEMIA
     Dosage: UNK
     Route: 042
     Dates: start: 20111111, end: 20111117
  2. ARACYTIN [Suspect]
     Dosage: 6 G/M2, CYCLIC
     Route: 042
     Dates: start: 20111216, end: 20111224
  3. CYCLOSPORINE [Concomitant]
     Dosage: 13.5 MG/KG, UNK
     Route: 042
     Dates: start: 20111218, end: 20111225
  4. ZAVEDOS [Concomitant]
     Dosage: UNK
     Route: 042

REACTIONS (1)
  - Febrile bone marrow aplasia [Recovered/Resolved]
